FAERS Safety Report 10112258 (Version 1)
Quarter: 2014Q2

REPORT INFORMATION
  Report Type: Report from Study
  Country: US (occurrence: US)
  Receive Date: 20140425
  Receipt Date: 20140425
  Transmission Date: 20141212
  Serious: Yes (Other)
  Sender: FDA-Public Use
  Company Number: US-ABBVIE-14P-163-1226315-00

PATIENT
  Age: 69 Year
  Sex: Female
  Weight: 115.32 kg

DRUGS (5)
  1. HUMIRA [Suspect]
     Indication: PSORIASIS
     Dates: start: 20140224, end: 20140331
  2. LISINOPRIL [Concomitant]
     Indication: HYPERTENSION
  3. BYETTA [Concomitant]
     Indication: DIABETES MELLITUS
  4. METFORMIN [Concomitant]
     Indication: DIABETES MELLITUS
  5. DOXYCYCLINE [Concomitant]
     Indication: ROSACEA

REACTIONS (8)
  - Axillary pain [Recovering/Resolving]
  - Erythema [Recovering/Resolving]
  - Subcutaneous abscess [Recovering/Resolving]
  - Neoplasm [Recovered/Resolved]
  - Nasal neoplasm [Recovered/Resolved]
  - Erythema [Recovered/Resolved]
  - Pain [Recovered/Resolved]
  - Pyrexia [Recovered/Resolved]
